FAERS Safety Report 14752294 (Version 18)
Quarter: 2019Q2

REPORT INFORMATION
  Report Type: Spontaneous
  Country: CA (occurrence: CA)
  Receive Date: 20180412
  Receipt Date: 20190416
  Transmission Date: 20190711
  Serious: Yes (Hospitalization, Other)
  Sender: FDA-Public Use
  Company Number: CA-CELLTRION INC.-2018CA017463

PATIENT

DRUGS (24)
  1. INFLECTRA [Suspect]
     Active Substance: INFLIXIMAB-DYYB
     Dosage: 800 MG, (EVERY 8 WEEKS)
     Route: 042
     Dates: start: 20180618
  2. INFLECTRA [Suspect]
     Active Substance: INFLIXIMAB-DYYB
     Dosage: 800 MG, EVERY 8 WEEKS
     Route: 042
     Dates: start: 20190213
  3. INFLECTRA [Suspect]
     Active Substance: INFLIXIMAB-DYYB
     Dosage: 500 MG, EVERY 0, 2, 6 WEEKS THEN EVERY 8 WEEKS
     Route: 042
     Dates: start: 20180117
  4. INFLECTRA [Suspect]
     Active Substance: INFLIXIMAB-DYYB
     Dosage: 800 MG, (EVERY 8 WEEKS)
     Route: 042
     Dates: start: 20181026
  5. INFLECTRA [Suspect]
     Active Substance: INFLIXIMAB-DYYB
     Dosage: 1000 MG, CYCLIC EVERY 8 WEEKS
     Route: 042
     Dates: start: 20190213
  6. SYNTHROID [Concomitant]
     Active Substance: LEVOTHYROXINE SODIUM
     Dosage: 0.125 MG, 1X/DAY
     Route: 048
     Dates: start: 1997
  7. TRAZODONE [Concomitant]
     Active Substance: TRAZODONE HYDROCHLORIDE
     Dosage: 150 MG, 1X/DAY
     Route: 048
     Dates: start: 2007
  8. INFLECTRA [Suspect]
     Active Substance: INFLIXIMAB-DYYB
     Dosage: 500 MG, (EVERY 2, 6 WEEKS THEN EVERY 8 WEEKS)
     Route: 042
     Dates: start: 20180412
  9. VENLAFAXINE [Concomitant]
     Active Substance: VENLAFAXINE HYDROCHLORIDE
     Dosage: 150 MG, DAILY
     Route: 048
  10. VITAMIN D2 [Concomitant]
     Active Substance: ERGOCALCIFEROL
     Dosage: 1X/DAY
     Route: 048
  11. CALCIUM [Concomitant]
     Active Substance: CALCIUM
     Dosage: UNK, DAILY
     Route: 048
  12. INFLECTRA [Suspect]
     Active Substance: INFLIXIMAB-DYYB
     Dosage: 500 MG, (EVERY 0, 2, 6 WEEKS THEN EVERY 8 WEEKS)
     Route: 042
     Dates: start: 20180117
  13. INFLECTRA [Suspect]
     Active Substance: INFLIXIMAB-DYYB
     Dosage: 500 MG, (EVERY 2, 6 WEEKS THEN EVERY 8 WEEKS;
     Route: 042
     Dates: start: 20180412
  14. INFLECTRA [Suspect]
     Active Substance: INFLIXIMAB-DYYB
     Dosage: 800 MG, (EVERY 8 WEEKS)
     Route: 042
     Dates: start: 20180822
  15. INFLECTRA [Suspect]
     Active Substance: INFLIXIMAB-DYYB
     Dosage: 800 MG, EVERY 8 WEEKS
     Route: 042
     Dates: start: 20181217
  16. HYDROCORTISONE. [Concomitant]
     Active Substance: HYDROCORTISONE
     Dosage: 100MG IV 15-30 MIN PRIOR INFUSION
  17. INFLECTRA [Suspect]
     Active Substance: INFLIXIMAB-DYYB
     Dosage: 1000 MG, UNK EVERY 8 WEEKS
     Route: 042
     Dates: start: 20190213
  18. ACETAMINOPHEN. [Concomitant]
     Active Substance: ACETAMINOPHEN
     Dosage: 1000MG PO/IV 15-30 MIN PRIOR INFUSION
  19. INFLECTRA [Suspect]
     Active Substance: INFLIXIMAB-DYYB
     Dosage: 5 MG/KG, MAINTENANCE
     Route: 065
  20. INFLECTRA [Suspect]
     Active Substance: INFLIXIMAB-DYYB
     Dosage: 800 MG, (EVERY 8 WEEKS)
     Route: 042
     Dates: start: 20180618
  21. INFLECTRA [Suspect]
     Active Substance: INFLIXIMAB-DYYB
     Indication: COLITIS ULCERATIVE
     Dosage: 500 MG, (EVERY 0, 2, 6 WEEKS THEN EVERY 8 WEEKS)
     Route: 042
     Dates: start: 20171227
  22. DEXILANT [Concomitant]
     Active Substance: DEXLANSOPRAZOLE
     Dosage: 60 MG, 1X/DAY
     Route: 048
     Dates: start: 201709
  23. PREDNISONE. [Concomitant]
     Active Substance: PREDNISONE
     Dosage: TAPERED DOSE
     Dates: start: 201712
  24. INFLECTRA [Suspect]
     Active Substance: INFLIXIMAB-DYYB
     Dosage: 500 MG, EVERY 0, 2, 6 WEEKS THEN EVERY 8 WEEKS
     Route: 042
     Dates: start: 20180214

REACTIONS (43)
  - Swelling [Not Recovered/Not Resolved]
  - Sinus pain [Unknown]
  - Malaise [Unknown]
  - Haemoglobin decreased [Unknown]
  - Arthropathy [Unknown]
  - Macular hole [Not Recovered/Not Resolved]
  - Cataract [Not Recovered/Not Resolved]
  - Influenza like illness [Not Recovered/Not Resolved]
  - Influenza [Not Recovered/Not Resolved]
  - Peripheral swelling [Not Recovered/Not Resolved]
  - Sinus congestion [Not Recovered/Not Resolved]
  - Gait inability [Unknown]
  - Blood potassium decreased [Unknown]
  - Urinary tract infection [Recovered/Resolved]
  - Cough [Unknown]
  - Fatigue [Unknown]
  - Dizziness [Not Recovered/Not Resolved]
  - Product use issue [Unknown]
  - Neuralgia [Not Recovered/Not Resolved]
  - Condition aggravated [Not Recovered/Not Resolved]
  - Pain [Unknown]
  - Memory impairment [Unknown]
  - Nasopharyngitis [Not Recovered/Not Resolved]
  - Depressed mood [Unknown]
  - Faecal calprotectin increased [Unknown]
  - Antinuclear antibody increased [Unknown]
  - Headache [Not Recovered/Not Resolved]
  - Blood pressure fluctuation [Unknown]
  - Dyspnoea exertional [Not Recovered/Not Resolved]
  - Sleep disorder [Not Recovered/Not Resolved]
  - Weight fluctuation [Unknown]
  - Systemic lupus erythematosus [Not Recovered/Not Resolved]
  - Nausea [Not Recovered/Not Resolved]
  - Arthritis [Not Recovered/Not Resolved]
  - Multiple allergies [Unknown]
  - Flushing [Not Recovered/Not Resolved]
  - Respiratory disorder [Unknown]
  - Skin infection [Recovered/Resolved]
  - Drug ineffective [Not Recovered/Not Resolved]
  - Night sweats [Unknown]
  - Chills [Not Recovered/Not Resolved]
  - Insomnia [Unknown]
  - C-reactive protein increased [Unknown]

NARRATIVE: CASE EVENT DATE: 20180203
